FAERS Safety Report 8477376-1 (Version None)
Quarter: 2012Q2

REPORT INFORMATION
  Report Type: 
  Country: None (occurrence: None)
  Receive Date: 20120618
  Receipt Date: 20120605
  Transmission Date: 20120825
  Serious: Yes (Hospitalization, Other)
  Sender: FDA-Public Use
  Company Number: ACO_30292_2012

PATIENT
  Age: 66 Year
  Sex: Male
  Weight: 77.1 kg

DRUGS (8)
  1. ENABLEX /01760401/ (DARIFENACIN) [Concomitant]
  2. FLOMAX /00889901/ (MORNIFLUMATE) [Concomitant]
  3. PROSCAR [Concomitant]
  4. POTASSIUM CHLORIDE [Concomitant]
  5. COPAXONE [Concomitant]
  6. BACLOFEN [Concomitant]
  7. DITROPAN [Concomitant]
  8. AMPYRA [Suspect]
     Indication: GAIT DISTURBANCE
     Dosage: 10 MG, BID, ORAL
     Route: 048
     Dates: start: 20100401, end: 20120505

REACTIONS (5)
  - SPEECH DISORDER [None]
  - REPETITIVE SPEECH [None]
  - CONFUSIONAL STATE [None]
  - CEREBRAL HAEMORRHAGE [None]
  - CONVULSION [None]
